FAERS Safety Report 25662632 (Version 1)
Quarter: 2025Q3

REPORT INFORMATION
  Report Type: Spontaneous
  Country: VN (occurrence: VN)
  Receive Date: 20250811
  Receipt Date: 20250811
  Transmission Date: 20251021
  Serious: Yes (Life-Threatening, Hospitalization, Other)
  Sender: STRIDES
  Company Number: VN-STRIDES ARCOLAB LIMITED-2025SP009958

PATIENT
  Age: 70 Year
  Sex: Male

DRUGS (1)
  1. AMLODIPINE [Suspect]
     Active Substance: AMLODIPINE BESYLATE
     Indication: Product used for unknown indication
     Route: 065

REACTIONS (10)
  - Acute respiratory distress syndrome [None]
  - Non-cardiogenic pulmonary oedema [None]
  - Acidosis [None]
  - Coma [None]
  - Cardiac dysfunction [None]
  - Bradycardia [None]
  - Hypotension [None]
  - Dyspnoea [None]
  - Toxicity to various agents [Unknown]
  - Overdose [Unknown]
